FAERS Safety Report 6504561-8 (Version None)
Quarter: 2009Q4

REPORT INFORMATION
  Report Type: 
  Country: None (occurrence: None)
  Receive Date: 20091215
  Receipt Date: 20091204
  Transmission Date: 20100525
  Serious: Yes (Death, Hospitalization)
  Sender: FDA-Public Use
  Company Number: 2009AC000216

PATIENT
  Age: 74 Year
  Sex: Male
  Weight: 88.905 kg

DRUGS (35)
  1. DIGOXIN [Suspect]
     Dosage: 0.125 MG;QD;PO
     Route: 048
  2. METOPRPOLOL [Concomitant]
  3. LISINOPRIL [Concomitant]
  4. SOTALOL HCL [Concomitant]
  5. ALLOPURINOL [Concomitant]
  6. WARFARIN [Concomitant]
  7. FUROSEMIDE [Concomitant]
  8. FOLATE [Concomitant]
  9. DIAZEPAM [Concomitant]
  10. TYLENOL (CAPLET) [Concomitant]
  11. COUMADIN [Concomitant]
  12. ZESTRIL [Concomitant]
  13. NITROGLYCERIN [Concomitant]
  14. LOPRESSOR [Concomitant]
  15. LORAZEPAM [Concomitant]
  16. LASIX [Concomitant]
  17. SOTALOL HCL [Concomitant]
  18. METOPURINOL [Concomitant]
  19. ALLOPURINOL [Concomitant]
  20. WARFARIN [Concomitant]
  21. FUROSEMIDE [Concomitant]
  22. SOTALOL HCL [Concomitant]
  23. LISINOPRIL [Concomitant]
  24. FOLIC ACID [Concomitant]
  25. DIAZEPAM [Concomitant]
  26. *WARFARIN [Concomitant]
  27. LISNIOPRIL [Concomitant]
  28. NITROGLYCERIN [Concomitant]
  29. METOPROLOL TARTRATE [Concomitant]
  30. LORAZEPAM [Concomitant]
  31. FUROSEMIDE [Concomitant]
  32. SOTALOL HCL [Concomitant]
  33. BETAPACE [Concomitant]
  34. ZOCOR [Concomitant]
  35. TYLENOL (CAPLET) [Concomitant]

REACTIONS (29)
  - ANAEMIA [None]
  - ANXIETY [None]
  - ARTERIOSCLEROSIS CORONARY ARTERY [None]
  - ATRIAL FIBRILLATION [None]
  - ATRIAL FLUTTER [None]
  - AZOTAEMIA [None]
  - CARDIAC ARREST [None]
  - CARDIAC FAILURE CONGESTIVE [None]
  - CARDIAC VALVE DISEASE [None]
  - CARDIOMYOPATHY [None]
  - CATARACT NUCLEAR [None]
  - DIVERTICULITIS [None]
  - DYSURIA [None]
  - ECONOMIC PROBLEM [None]
  - EMOTIONAL DISORDER [None]
  - HEART RATE DECREASED [None]
  - HYPERLIPIDAEMIA [None]
  - INJURY [None]
  - ISCHAEMIC CARDIOMYOPATHY [None]
  - MICTURITION URGENCY [None]
  - MITRAL VALVE INCOMPETENCE [None]
  - OEDEMA [None]
  - PAIN [None]
  - POLLAKIURIA [None]
  - RENAL FAILURE [None]
  - SOCIAL PROBLEM [None]
  - SUDDEN DEATH [None]
  - TREATMENT NONCOMPLIANCE [None]
  - UPPER RESPIRATORY TRACT INFECTION [None]
